FAERS Safety Report 19808324 (Version 1)
Quarter: 2021Q3

REPORT INFORMATION
  Report Type: Spontaneous
  Country: US (occurrence: US)
  Receive Date: 20210908
  Receipt Date: 20210908
  Transmission Date: 20211014
  Serious: Yes (Hospitalization)
  Sender: FDA-Public Use
  Company Number: None

PATIENT
  Age: 59 Year
  Sex: Male

DRUGS (22)
  1. CELEBREX [Concomitant]
     Active Substance: CELECOXIB
  2. METOPROLOL. [Concomitant]
     Active Substance: METOPROLOL
  3. TRAMADOL. [Concomitant]
     Active Substance: TRAMADOL
  4. BACLOFEN. [Concomitant]
     Active Substance: BACLOFEN
  5. ISOSORB MONO [Concomitant]
     Active Substance: ISOSORBIDE MONONITRATE
  6. KLOR?CON [Concomitant]
     Active Substance: POTASSIUM CHLORIDE
  7. SIMVASTATIN. [Concomitant]
     Active Substance: SIMVASTATIN
  8. KESIMPTA [Suspect]
     Active Substance: OFATUMUMAB
     Indication: MULTIPLE SCLEROSIS
     Dosage: ?          OTHER FREQUENCY:EVERY MONTH;?
     Route: 058
     Dates: start: 20210107
  9. HYDROCO/APAP [Concomitant]
     Active Substance: ACETAMINOPHEN\HYDROCODONE
  10. OMEPRAZOLE. [Concomitant]
     Active Substance: OMEPRAZOLE
  11. FAMOTIDINE. [Concomitant]
     Active Substance: FAMOTIDINE
  12. GABAPENTIN. [Concomitant]
     Active Substance: GABAPENTIN
  13. VITAMIN D [Concomitant]
     Active Substance: VITAMIN D NOS
  14. MECLIZINE [Concomitant]
     Active Substance: MECLIZINE HYDROCHLORIDE
  15. RANEXA [Concomitant]
     Active Substance: RANOLAZINE
  16. IRON [Concomitant]
     Active Substance: IRON
  17. METFORMIN [Concomitant]
     Active Substance: METFORMIN HYDROCHLORIDE
  18. MULTI VITAMI [Concomitant]
  19. SYNTHROID [Concomitant]
     Active Substance: LEVOTHYROXINE SODIUM
  20. LASIX [Concomitant]
     Active Substance: FUROSEMIDE
  21. VITAMIN C [Concomitant]
     Active Substance: ASCORBIC ACID
  22. ASPIRIN. [Concomitant]
     Active Substance: ASPIRIN

REACTIONS (2)
  - Pneumonia [None]
  - Sepsis [None]

NARRATIVE: CASE EVENT DATE: 20210906
